FAERS Safety Report 17858343 (Version 2)
Quarter: 2020Q2

REPORT INFORMATION
  Report Type: Report from Study
  Country: None (occurrence: US)
  Receive Date: 20200604
  Receipt Date: 20200605
  Transmission Date: 20200714
  Serious: No
  Sender: FDA-Public Use
  Company Number: US-US WORLDMEDS, LLC-USW201906-001219

PATIENT
  Age: 89 Year
  Sex: Female
  Weight: 81.64 kg

DRUGS (7)
  1. APOKYN [Suspect]
     Active Substance: APOMORPHINE HYDROCHLORIDE
     Indication: PARKINSON^S DISEASE
     Dosage: 30MG/3 ML
     Route: 058
     Dates: start: 20190625
  2. APOKYN [Suspect]
     Active Substance: APOMORPHINE HYDROCHLORIDE
     Dosage: 30MG/3 ML
     Route: 058
     Dates: start: 20190625
  3. INDOMETHACIN. [Concomitant]
     Active Substance: INDOMETHACIN
  4. GABAPENTIN. [Concomitant]
     Active Substance: GABAPENTIN
  5. RASAGILINE. [Concomitant]
     Active Substance: RASAGILINE
  6. TIGAN [Concomitant]
     Active Substance: TRIMETHOBENZAMIDE HYDROCHLORIDE
  7. MONTELUKAST [Concomitant]
     Active Substance: MONTELUKAST SODIUM

REACTIONS (2)
  - Fatigue [Recovered/Resolved]
  - Feeling abnormal [Recovered/Resolved]

NARRATIVE: CASE EVENT DATE: 20190624
